FAERS Safety Report 4332326-4 (Version None)
Quarter: 2004Q2

REPORT INFORMATION
  Report Type: 
  Country: None (occurrence: None)
  Receive Date: 20040401
  Receipt Date: 20040316
  Transmission Date: 20050107
  Serious: Yes (Hospitalization)
  Sender: FDA-Public Use
  Company Number: 7676

PATIENT
  Age: 40 Year
  Sex: Male

DRUGS (5)
  1. LEUCOVORIN CALCIUM [Suspect]
     Indication: COLON CANCER
     Dosage: 75 MG, 500 MG/400 MG , PO
     Route: 048
     Dates: start: 20030509, end: 20030724
  2. UFT [Suspect]
     Indication: COLON CANCER
     Dosage: 500 MG/400 MG , PO
     Route: 048
     Dates: start: 20030509, end: 20030704
  3. UFT [Suspect]
     Indication: COLON CANCER
     Dosage: 500 MG/400 MG , PO
     Route: 048
     Dates: start: 20030718, end: 20030724
  4. LEVOGLULTAMIDE/SODIUM GUALENATE [Concomitant]
  5. MAGNESIUM OXIDE [Concomitant]

REACTIONS (3)
  - ALANINE AMINOTRANSFERASE INCREASED [None]
  - ASPARTATE AMINOTRANSFERASE INCREASED [None]
  - ILEUS PARALYTIC [None]
